FAERS Safety Report 4334015-9 (Version None)
Quarter: 2004Q2

REPORT INFORMATION
  Report Type: 
  Country: None (occurrence: None)
  Receive Date: 20040402
  Receipt Date: 20040323
  Transmission Date: 20050107
  Serious: Yes (Death)
  Sender: FDA-Public Use
  Company Number: HQWYE102525MAR04

PATIENT
  Sex: Male

DRUGS (3)
  1. PRIMATENE MIST [Suspect]
     Dosage: INHALATION
     Route: 055
  2. ALBUTEROL [Suspect]
     Dosage: INHALATION
     Route: 055
  3. ALCOHOL (ETHANOL, ) [Suspect]
     Dosage: ORAL
     Route: 048

REACTIONS (2)
  - BLOOD ALCOHOL INCREASED [None]
  - ROAD TRAFFIC ACCIDENT [None]
